FAERS Safety Report 7473293-4 (Version None)
Quarter: 2011Q2

REPORT INFORMATION
  Report Type: 
  Country: None (occurrence: None)
  Receive Date: 20110511
  Receipt Date: 20110426
  Transmission Date: 20111010
  Serious: Yes (Hospitalization)
  Sender: FDA-Public Use
  Company Number: US-JNJFOC-20110304948

PATIENT
  Sex: Male
  Weight: 110.68 kg

DRUGS (9)
  1. DILTIAZEM [Concomitant]
     Indication: CARDIAC DISORDER
  2. DILANTIN [Concomitant]
     Indication: ARTERIOVENOUS MALFORMATION
  3. MIRTAZAPINE [Concomitant]
     Indication: POST-TRAUMATIC STRESS DISORDER
  4. CARVEDILOL [Concomitant]
     Indication: CARDIAC DISORDER
  5. EXTRA STRENGTH TYLENOL [Suspect]
     Indication: BACK PAIN
     Dosage: ^TWO TABLETS EVERY FOUR TO FIVE YEARS^
     Route: 048
  6. ALPRAZOLAM [Concomitant]
     Indication: POST-TRAUMATIC STRESS DISORDER
  7. EXTRA STRENGTH TYLENOL [Suspect]
     Indication: MUSCULOSKELETAL PAIN
     Dosage: ^TWO TABLETS EVERY FOUR TO FIVE YEARS^
     Route: 048
  8. CALCIUM [Concomitant]
     Indication: MEDICAL DIET
  9. FUROSEMIDE [Concomitant]
     Indication: PERICARDIAL EFFUSION

REACTIONS (5)
  - ATRIAL FIBRILLATION [None]
  - ABDOMINAL DISTENSION [None]
  - CARDIAC FAILURE CONGESTIVE [None]
  - PRODUCT QUALITY ISSUE [None]
  - ACUTE RESPIRATORY FAILURE [None]
